FAERS Safety Report 21790006 (Version 1)
Quarter: 2022Q4

REPORT INFORMATION
  Report Type: Spontaneous
  Country: IL (occurrence: None)
  Receive Date: 20221228
  Receipt Date: 20221228
  Transmission Date: 20230113
  Serious: Yes (Other)
  Sender: FDA-Public Use
  Company Number: 2022A418256

PATIENT
  Age: 67 Year
  Sex: Male
  Weight: 86 kg

DRUGS (7)
  1. OMEPRAZOLE [Interacting]
     Active Substance: OMEPRAZOLE
     Route: 048
  2. FUROSEMIDE [Interacting]
     Active Substance: FUROSEMIDE
     Route: 065
  3. CIPROFLOXACIN [Interacting]
     Active Substance: CIPROFLOXACIN
     Route: 065
  4. METHOTREXATE [Interacting]
     Active Substance: METHOTREXATE
     Indication: Diffuse large B-cell lymphoma
     Dosage: HD-MTX (2.25?3.5 G/M2 AS INTRAVENOUS INFUSION DURING 2?3 H). THIRD COURSE OF HIGH DOSE METHOTREXA...
     Route: 042
  5. METHOTREXATE [Interacting]
     Active Substance: METHOTREXATE
     Indication: Diffuse large B-cell lymphoma
     Dosage: REDUCED DOSES (2.0 AND THEN 2.5 G/M2 , CORRESPONDING TO A 43% AND 29% DOSE REDUCTION)
     Route: 042
  6. METHOTREXATE [Interacting]
     Active Substance: METHOTREXATE
     Indication: Diffuse large B-cell lymphoma
     Dosage: DURING 3 H
     Route: 042
  7. METHOTREXATE [Interacting]
     Active Substance: METHOTREXATE
     Indication: Diffuse large B-cell lymphoma
     Route: 042

REACTIONS (3)
  - Acute kidney injury [Unknown]
  - Thrombocytopenia [Unknown]
  - Labelled drug-drug interaction medication error [Unknown]
